FAERS Safety Report 15930673 (Version 2)
Quarter: 2019Q2

REPORT INFORMATION
  Report Type: Spontaneous
  Country: US (occurrence: US)
  Receive Date: 20190207
  Receipt Date: 20190606
  Transmission Date: 20190711
  Serious: No
  Sender: FDA-Public Use
  Company Number: US-BIOGEN-2019BI00691786

PATIENT
  Sex: Female

DRUGS (1)
  1. TECFIDERA [Suspect]
     Active Substance: DIMETHYL FUMARATE
     Indication: MULTIPLE SCLEROSIS
     Route: 050
     Dates: start: 201402

REACTIONS (4)
  - Drug ineffective [Unknown]
  - Urinary tract infection [Recovered/Resolved]
  - Pruritus [Recovered/Resolved]
  - Multiple sclerosis relapse [Recovered/Resolved]
